FAERS Safety Report 15820555 (Version 1)
Quarter: 2019Q1

REPORT INFORMATION
  Report Type: Spontaneous
  Country: US (occurrence: US)
  Receive Date: 20190111
  Receipt Date: 20190111
  Transmission Date: 20190417
  Serious: Yes (Other)
  Sender: FDA-Public Use
  Company Number: None

PATIENT
  Age: 80 Year
  Sex: Male
  Weight: 117 kg

DRUGS (6)
  1. GLEEVEC [Suspect]
     Active Substance: IMATINIB MESYLATE
     Indication: CHRONIC LYMPHOCYTIC LEUKAEMIA
     Route: 048
     Dates: start: 20170714
  2. NEXIUM [Concomitant]
     Active Substance: ESOMEPRAZOLE MAGNESIUM
  3. XARELTO [Concomitant]
     Active Substance: RIVAROXABAN
  4. RANITIDINE. [Concomitant]
     Active Substance: RANITIDINE
  5. TUMS [Concomitant]
     Active Substance: CALCIUM CARBONATE
  6. LUTEIN [Concomitant]
     Active Substance: LUTEIN

REACTIONS (1)
  - Dyspepsia [None]
